FAERS Safety Report 6763003-8 (Version None)
Quarter: 2010Q2

REPORT INFORMATION
  Report Type: 
  Country: None (occurrence: None)
  Receive Date: 20100608
  Receipt Date: 20100608
  Transmission Date: 20101027
  Serious: Yes (Other)
  Sender: FDA-Public Use
  Company Number: None

PATIENT
  Sex: Female
  Weight: 62.7 kg

DRUGS (1)
  1. DDAVP [Suspect]
     Dosage: 15 UNITS AM 25 UNITS PM SQ
     Route: 058

REACTIONS (2)
  - DIABETES INSIPIDUS [None]
  - HYPOPITUITARISM [None]
